FAERS Safety Report 20704454 (Version 2)
Quarter: 2022Q2

REPORT INFORMATION
  Report Type: Spontaneous
  Country: US (occurrence: US)
  Receive Date: 20220413
  Receipt Date: 20220505
  Transmission Date: 20220721
  Serious: Yes (Other)
  Sender: FDA-Public Use
  Company Number: US-MLMSERVICE-20220318-3444033-1

PATIENT
  Sex: Female

DRUGS (1)
  1. PROPRANOLOL [Suspect]
     Active Substance: PROPRANOLOL HYDROCHLORIDE

REACTIONS (5)
  - Throat tightness [Unknown]
  - Tongue discomfort [Unknown]
  - Swelling face [Unknown]
  - Mast cell activation syndrome [Unknown]
  - Condition aggravated [Unknown]
